FAERS Safety Report 5302060-2 (Version None)
Quarter: 2007Q2

REPORT INFORMATION
  Report Type: 
  Country: None (occurrence: None)
  Receive Date: 20070413
  Receipt Date: 20070330
  Transmission Date: 20071010
  Serious: Yes (Other)
  Sender: FDA-Public Use
  Company Number: TUK2007A00030

PATIENT
  Age: 71 Year
  Sex: Female

DRUGS (1)
  1. ACTOS [Suspect]
     Dosage: 15 MG

REACTIONS (2)
  - DIPLOPIA [None]
  - VISUAL DISTURBANCE [None]
